FAERS Safety Report 7118621-4 (Version None)
Quarter: 2010Q4

REPORT INFORMATION
  Report Type: 
  Country: None (occurrence: None)
  Receive Date: 20101027
  Receipt Date: 20100511
  Transmission Date: 20110411
  Serious: Yes (Other)
  Sender: FDA-Public Use
  Company Number: US-WYE-H15191910

PATIENT
  Age: 76 Year
  Sex: Female
  Weight: 77.18 kg

DRUGS (5)
  1. PREMARIN [Suspect]
     Indication: VULVOVAGINAL DISCOMFORT
     Dosage: 0.625 MG 2X PER 1 WK, VAGINAL; 0.625 MG 1X PER 1 WK, VAGINAL
     Route: 067
     Dates: start: 20080101
  2. PREMARIN [Suspect]
     Indication: VULVOVAGINAL DISCOMFORT
     Dosage: 0.625 MG 2X PER 1 WK, VAGINAL; 0.625 MG 1X PER 1 WK, VAGINAL
     Route: 067
     Dates: start: 20100501
  3. QUINAPRIL HCL [Concomitant]
  4. VERAPAMIL [Concomitant]
  5. DOXAZOSIN MESYLATE [Concomitant]

REACTIONS (1)
  - VAGINAL INFECTION [None]
